FAERS Safety Report 15334135 (Version 2)
Quarter: 2018Q4

REPORT INFORMATION
  Report Type: Spontaneous
  Country: US (occurrence: US)
  Receive Date: 20180830
  Receipt Date: 20181106
  Transmission Date: 20190204
  Serious: Yes (Hospitalization, Other)
  Sender: FDA-Public Use
  Company Number: US-SA-2018SA237230

PATIENT
  Age: 58 Year
  Sex: Female
  Weight: 84.1 kg

DRUGS (1)
  1. AUBAGIO [Suspect]
     Active Substance: TERIFLUNOMIDE
     Indication: MULTIPLE SCLEROSIS
     Dosage: 7 MG
     Route: 048

REACTIONS (20)
  - Tenderness [Unknown]
  - Gastrointestinal haemorrhage [Unknown]
  - Rectal haemorrhage [Unknown]
  - Nausea [Unknown]
  - Anxiety [Unknown]
  - Acute kidney injury [Unknown]
  - Urinary tract infection enterococcal [Unknown]
  - Palpitations [Unknown]
  - Multiple sclerosis relapse [Unknown]
  - Erythema [Unknown]
  - Headache [Unknown]
  - Cellulitis [Recovered/Resolved]
  - Pyrexia [Not Recovered/Not Resolved]
  - Pneumonitis [Unknown]
  - Dizziness [Unknown]
  - Hypertension [Unknown]
  - Decreased appetite [Unknown]
  - Normocytic anaemia [Unknown]
  - Supraventricular tachycardia [Unknown]
  - Troponin I increased [Unknown]

NARRATIVE: CASE EVENT DATE: 20180530
